FAERS Safety Report 7918896-5 (Version None)
Quarter: 2011Q4

REPORT INFORMATION
  Report Type: 
  Country: None (occurrence: None)
  Receive Date: 20111116
  Receipt Date: 20111109
  Transmission Date: 20120403
  Serious: Yes (Death, Other)
  Sender: FDA-Public Use
  Company Number: PHEH2006US08858

PATIENT
  Sex: Male
  Weight: 99.773 kg

DRUGS (26)
  1. OXYGEN THERAPY [Concomitant]
     Dosage: 2 L
  2. HYDROCHLOROTHIAZIDE [Concomitant]
     Dosage: 25 MG, QD
  3. PREDNISONE TAB [Concomitant]
     Indication: CHRONIC OBSTRUCTIVE PULMONARY DISEASE
  4. FUROSEMIDE [Concomitant]
  5. OXYCODONE HCL [Concomitant]
  6. ZOFRAN [Concomitant]
  7. DIGOXIN [Concomitant]
  8. HORMONES [Concomitant]
  9. INFLUENZA VIRUS VACCINE [Concomitant]
     Dates: start: 20030101
  10. TAXOL + CARBOPLATIN [Concomitant]
     Indication: PROSTATE CANCER METASTATIC
  11. CASODEX [Concomitant]
  12. COUMADIN [Concomitant]
     Dosage: UNK
     Dates: end: 20060202
  13. VIADUR [Concomitant]
  14. LOVENOX [Concomitant]
     Dates: start: 20060202
  15. DARVOCET-N 50 [Concomitant]
     Dosage: 100 MG,
  16. ATROVENT [Concomitant]
     Indication: ASTHMA
  17. ZOMETA [Suspect]
     Indication: BONE NEOPLASM MALIGNANT
  18. ERYTHROMYCIN [Concomitant]
     Dates: start: 20050101, end: 20050101
  19. ASPIRIN [Concomitant]
  20. LUPRON [Concomitant]
     Dosage: 30 MG, UNK
  21. HORMONES AND RELATED AGENTS [Concomitant]
  22. ALBUTEROL SULFATE [Concomitant]
     Indication: ASTHMA
  23. TAXOTERE [Concomitant]
     Indication: PROSTATE CANCER METASTATIC
     Dosage: 75 MG/M2,
     Dates: start: 20040929, end: 20060701
  24. COSMOPEN [Concomitant]
  25. ACETAMINOPHEN [Concomitant]
  26. ZOMETA [Suspect]
     Indication: PROSTATE CANCER METASTATIC
     Dosage: 4 MG, EVERY 4-6 WEEKS
     Dates: start: 20020101, end: 20050727

REACTIONS (59)
  - BONE PAIN [None]
  - OSTEOMYELITIS [None]
  - CELLULITIS [None]
  - TRICUSPID VALVE INCOMPETENCE [None]
  - OEDEMA [None]
  - ASTHENIA [None]
  - OBESITY [None]
  - NEOPLASM MALIGNANT [None]
  - LEFT VENTRICULAR DYSFUNCTION [None]
  - VENTRICULAR TACHYCARDIA [None]
  - TOOTH LOSS [None]
  - HAND FRACTURE [None]
  - DEEP VEIN THROMBOSIS [None]
  - HYPONATRAEMIA [None]
  - HYPOKALAEMIA [None]
  - INCREASED TENDENCY TO BRUISE [None]
  - PROSTATIC SPECIFIC ANTIGEN INCREASED [None]
  - METASTASES TO BONE [None]
  - INJURY [None]
  - MASTICATION DISORDER [None]
  - DYSGEUSIA [None]
  - CHRONIC OBSTRUCTIVE PULMONARY DISEASE [None]
  - ARRHYTHMIA SUPRAVENTRICULAR [None]
  - VENTRICULAR HYPERTROPHY [None]
  - NEUROGENIC BLADDER [None]
  - GINGIVAL ERYTHEMA [None]
  - OSTEONECROSIS OF JAW [None]
  - ANXIETY [None]
  - BONE DISORDER [None]
  - IMPAIRED HEALING [None]
  - BREATH ODOUR [None]
  - BRONCHITIS [None]
  - URINARY RETENTION [None]
  - WEIGHT DECREASED [None]
  - PAIN [None]
  - CEREBROVASCULAR ACCIDENT [None]
  - DIZZINESS [None]
  - ATAXIA [None]
  - DIVERTICULUM [None]
  - FALL [None]
  - UPPER RESPIRATORY TRACT INFECTION [None]
  - BRADYCARDIA [None]
  - TOOTH DISORDER [None]
  - HYPOXIA [None]
  - ATRIAL FIBRILLATION [None]
  - HYPOTONIC URINARY BLADDER [None]
  - HAEMORRHOIDS [None]
  - ATELECTASIS [None]
  - HAEMATURIA [None]
  - SKIN REACTION [None]
  - CHEILITIS [None]
  - EXPOSED BONE IN JAW [None]
  - METASTASES TO LUNG [None]
  - HEPATIC LESION [None]
  - ANGINA PECTORIS [None]
  - MITRAL VALVE INCOMPETENCE [None]
  - ORAL CANDIDIASIS [None]
  - STOMATITIS [None]
  - AORTIC VALVE SCLEROSIS [None]
